FAERS Safety Report 17715212 (Version 1)
Quarter: 2020Q2

REPORT INFORMATION
  Report Type: Report from Study
  Country: IE (occurrence: IE)
  Receive Date: 20200427
  Receipt Date: 20200427
  Transmission Date: 20200714
  Serious: Yes (Hospitalization)
  Sender: FDA-Public Use
  Company Number: IE-JNJFOC-20200431443

PATIENT
  Age: 70 Year
  Sex: Male

DRUGS (18)
  1. METFORMIN [Concomitant]
     Active Substance: METFORMIN HYDROCHLORIDE
     Route: 050
  2. ELANTAN [Concomitant]
     Active Substance: ISOSORBIDE MONONITRATE
     Route: 050
  3. BUTRANS [Concomitant]
     Active Substance: BUPRENORPHINE
     Route: 050
  4. ZIMOVANE [Concomitant]
     Active Substance: ZOPICLONE
     Route: 050
  5. TRITACE [Concomitant]
     Active Substance: RAMIPRIL
     Route: 050
  6. ROSUVASTATIN. [Concomitant]
     Active Substance: ROSUVASTATIN
     Route: 050
  7. ORAMORPH [Concomitant]
     Active Substance: MORPHINE SULFATE
     Route: 050
  8. PANTOPRAZOLE [Concomitant]
     Active Substance: PANTOPRAZOLE
     Route: 050
  9. ESCITALOPRAM [Concomitant]
     Active Substance: ESCITALOPRAM OXALATE
     Route: 050
  10. FORXIGA [Concomitant]
     Active Substance: DAPAGLIFLOZIN
     Route: 050
  11. VALOID                             /00014902/ [Concomitant]
     Active Substance: CYCLIZINE HYDROCHLORIDE
     Route: 050
  12. ASPRIN [Concomitant]
     Active Substance: ASPIRIN
     Route: 050
  13. ABIRATERONE ACETATE. [Suspect]
     Active Substance: ABIRATERONE ACETATE
     Indication: PROSTATE CANCER
     Route: 048
     Dates: start: 20170717
  14. CALCIUP D3 FORTE [Concomitant]
     Route: 050
  15. DELTACORTRIL [Concomitant]
     Active Substance: PREDNISOLONE
     Route: 050
  16. ORAMORPH [Concomitant]
     Active Substance: MORPHINE SULFATE
     Route: 050
  17. CARDICOR [Concomitant]
     Active Substance: BISOPROLOL
     Route: 050
  18. NEURONTIN [Concomitant]
     Active Substance: GABAPENTIN
     Route: 050

REACTIONS (1)
  - Pneumonia [Recovered/Resolved]

NARRATIVE: CASE EVENT DATE: 20200408
